FAERS Safety Report 9345316 (Version 1)
Quarter: 2013Q2

REPORT INFORMATION
  Report Type: Spontaneous
  Country: GB (occurrence: GB)
  Receive Date: 20130613
  Receipt Date: 20130613
  Transmission Date: 20140414
  Serious: Yes (Other)
  Sender: FDA-Public Use
  Company Number: GB-ROCHE-1235098

PATIENT
  Age: 39 Year
  Sex: Male

DRUGS (6)
  1. VALIUM [Suspect]
     Indication: PRODUCT USED FOR UNKNOWN INDICATION
     Route: 065
     Dates: start: 20121231, end: 20130108
  2. INCIVO [Suspect]
     Indication: HEPATITIS C
     Route: 048
     Dates: start: 20121105
  3. TRIBAVIRIN [Suspect]
     Indication: HEPATITIS C
     Route: 048
     Dates: start: 20121105
  4. TRIBAVIRIN [Suspect]
     Route: 048
  5. METHADONE [Concomitant]
     Indication: DEPENDENCE
     Route: 065
  6. VIRAFERONPEG [Concomitant]
     Indication: HEPATITIS C
     Route: 065

REACTIONS (1)
  - Anaemia [Recovered/Resolved]
